FAERS Safety Report 8906919 (Version 1)
Quarter: 2012Q4

REPORT INFORMATION
  Report Type: 
  Country: BR (occurrence: BR)
  Receive Date: 20121114
  Receipt Date: 20121114
  Transmission Date: 20130627
  Serious: Yes (Other)
  Sender: FDA-Public Use
  Company Number: BR-JNJFOC-20121015588

PATIENT
  Age: 76 None
  Sex: Male
  Weight: 77 kg

DRUGS (9)
  1. XARELTO [Suspect]
     Indication: THROMBOSIS PROPHYLAXIS
     Route: 048
     Dates: start: 20120702
  2. ASPIRIN [Suspect]
     Indication: ARRHYTHMIA
     Route: 048
     Dates: start: 1992, end: 201207
  3. ASPIRIN [Suspect]
     Indication: THROMBOSIS PROPHYLAXIS
     Route: 048
     Dates: start: 1992, end: 201207
  4. PANTOPRAZOLE [Concomitant]
     Indication: GASTROOESOPHAGEAL REFLUX DISEASE
     Route: 048
     Dates: start: 2009
  5. ATENOLOL [Concomitant]
     Indication: HYPERTENSION
     Route: 048
  6. AMLODIPINE [Concomitant]
     Indication: HYPERTENSION
     Route: 048
  7. INDAPAMIDE [Concomitant]
     Indication: HYPERTENSION
     Route: 048
  8. DIOVAN [Concomitant]
     Indication: HYPERTENSION
     Route: 048
  9. ALLOPURINOL [Concomitant]
     Indication: BLOOD URIC ACID ABNORMAL
     Route: 048

REACTIONS (5)
  - Genital haemorrhage [Recovered/Resolved]
  - Extravasation blood [Recovered/Resolved]
  - Musculoskeletal stiffness [Not Recovered/Not Resolved]
  - Puncture site haemorrhage [Recovered/Resolved]
  - Bleeding time prolonged [Unknown]
